FAERS Safety Report 5026746-2 (Version None)
Quarter: 2006Q2

REPORT INFORMATION
  Report Type: 
  Country: None (occurrence: None)
  Receive Date: 20060615
  Receipt Date: 20060607
  Transmission Date: 20061013
  Serious: Yes (Other)
  Sender: FDA-Public Use
  Company Number: US-MERCK-0606USA01471

PATIENT
  Sex: Male

DRUGS (3)
  1. SINGULAIR [Suspect]
     Route: 048
  2. MOTRIN [Concomitant]
     Route: 065
  3. AMOXICILLIN [Concomitant]
     Route: 065

REACTIONS (1)
  - STEVENS-JOHNSON SYNDROME [None]
